FAERS Safety Report 15288984 (Version 1)
Quarter: 2018Q3

REPORT INFORMATION
  Report Type: Spontaneous
  Country: US (occurrence: US)
  Receive Date: 20180817
  Receipt Date: 20180817
  Transmission Date: 20181010
  Serious: No
  Sender: FDA-Public Use
  Company Number: US-009507513-1807USA011987

PATIENT
  Age: 24 Year
  Sex: Female
  Weight: 86.62 kg

DRUGS (1)
  1. NEXPLANON [Suspect]
     Active Substance: ETONOGESTREL
     Indication: CONTRACEPTION
     Dosage: 1 IMPLANT
     Route: 059
     Dates: start: 20180711

REACTIONS (8)
  - Implant site pain [Not Recovered/Not Resolved]
  - Implant site erythema [Not Recovered/Not Resolved]
  - Contusion [Recovered/Resolved]
  - Complication associated with device [Not Recovered/Not Resolved]
  - Pain in extremity [Not Recovered/Not Resolved]
  - Administration site discomfort [Unknown]
  - Peripheral swelling [Recovered/Resolved]
  - Implant site erosion [Not Recovered/Not Resolved]

NARRATIVE: CASE EVENT DATE: 201807
